FAERS Safety Report 16557103 (Version 2)
Quarter: 2019Q3

REPORT INFORMATION
  Report Type: Report from Study
  Country: US (occurrence: US)
  Receive Date: 20190711
  Receipt Date: 20190823
  Transmission Date: 20191004
  Serious: Yes (Other)
  Sender: FDA-Public Use
  Company Number: US-BAYER-2019-128993

PATIENT
  Age: 71 Year
  Sex: Male

DRUGS (2)
  1. NEXAVAR [Suspect]
     Active Substance: SORAFENIB
     Dosage: 200 MG, BID
     Dates: start: 20190506, end: 2019
  2. NEXAVAR [Suspect]
     Active Substance: SORAFENIB
     Dosage: DOSE REDUCED
     Dates: start: 2019, end: 2019

REACTIONS (2)
  - End stage renal disease [Not Recovered/Not Resolved]
  - Off label use [None]

NARRATIVE: CASE EVENT DATE: 20190506
